FAERS Safety Report 7548434-0 (Version None)
Quarter: 2011Q2

REPORT INFORMATION
  Report Type: 
  Country: None (occurrence: None)
  Receive Date: 20110615
  Receipt Date: 20110605
  Transmission Date: 20111010
  Serious: Yes (Hospitalization)
  Sender: FDA-Public Use
  Company Number: US-JNJFOC-20100510801

PATIENT
  Age: 5 Month
  Sex: Male
  Weight: 7.71 kg

DRUGS (5)
  1. CONCENTRATED MOTRIN INFANTS DROPS [Suspect]
     Indication: INJECTION
     Dosage: ^REGULAR^ EVERY 4 HOURS
     Route: 048
     Dates: start: 20100201, end: 20100401
  2. CONCENTRATED TYLENOL INFANT DROPS [Suspect]
     Indication: NASOPHARYNGITIS
  3. CONCENTRATED MOTRIN INFANTS DROPS [Suspect]
     Route: 048
  4. CONCENTRATED TYLENOL INFANT DROPS [Suspect]
     Indication: INJECTION
  5. CONCENTRATED TYLENOL INFANT DROPS [Suspect]
     Indication: PYREXIA

REACTIONS (3)
  - URINARY TRACT INFECTION BACTERIAL [None]
  - PRODUCT QUALITY ISSUE [None]
  - KIDNEY INFECTION [None]
